FAERS Safety Report 11897768 (Version 2)
Quarter: 2016Q1

REPORT INFORMATION
  Report Type: Spontaneous
  Country: FR (occurrence: FR)
  Receive Date: 20160108
  Receipt Date: 20160115
  Transmission Date: 20160526
  Serious: Yes (Death)
  Sender: FDA-Public Use
  Company Number: FR-ROCHE-1690203

PATIENT
  Age: 72 Year
  Sex: Female

DRUGS (15)
  1. VALIUM [Interacting]
     Active Substance: DIAZEPAM
     Route: 048
     Dates: start: 20150713, end: 20150714
  2. CORDARONE [Concomitant]
     Active Substance: AMIODARONE HYDROCHLORIDE
     Route: 048
     Dates: start: 20150223, end: 20150714
  3. RISPERDAL [Interacting]
     Active Substance: RISPERIDONE
     Route: 048
     Dates: start: 20150616, end: 20150714
  4. PREVISCAN (FRANCE) [Concomitant]
     Active Substance: FLUINDIONE
     Route: 048
     Dates: start: 20150223, end: 20150714
  5. NORMACOL [Concomitant]
     Active Substance: KARAYA GUM
     Route: 054
     Dates: end: 20150714
  6. SERESTA [Interacting]
     Active Substance: OXAZEPAM
     Indication: MENTAL DISORDER
     Route: 048
     Dates: start: 20150515, end: 20150714
  7. RISPERDAL [Interacting]
     Active Substance: RISPERIDONE
     Indication: MENTAL DISORDER
     Route: 048
     Dates: start: 20150518, end: 20150615
  8. ANAFRANIL [Concomitant]
     Active Substance: CLOMIPRAMINE HYDROCHLORIDE
     Route: 048
     Dates: start: 20150223, end: 20150714
  9. KETODERM (FRANCE) [Concomitant]
     Route: 003
     Dates: start: 20150318, end: 20150714
  10. VALIUM [Suspect]
     Active Substance: DIAZEPAM
     Indication: AGITATION
     Route: 048
     Dates: start: 20150710, end: 20150712
  11. NOCTAMIDE [Interacting]
     Active Substance: LORMETAZEPAM
     Indication: MENTAL DISORDER
     Route: 048
     Dates: start: 20150414, end: 20150714
  12. KARDEGIC [Concomitant]
     Active Substance: ASPIRIN LYSINE
     Route: 048
     Dates: start: 20150123, end: 20150714
  13. TEMESTA (FRANCE) [Interacting]
     Active Substance: LORAZEPAM
     Indication: PRODUCT USED FOR UNKNOWN INDICATION
     Route: 048
     Dates: start: 20150227, end: 20150710
  14. XENAZINE [Interacting]
     Active Substance: TETRABENAZINE
     Indication: PRODUCT USED FOR UNKNOWN INDICATION
     Route: 054
     Dates: start: 20150311, end: 20150714
  15. LASIX [Concomitant]
     Active Substance: FUROSEMIDE
     Route: 030

REACTIONS (4)
  - Drug interaction [Fatal]
  - Respiratory depression [Fatal]
  - Pneumonia aspiration [Fatal]
  - Dyspnoea [Fatal]

NARRATIVE: CASE EVENT DATE: 20150714
